FAERS Safety Report 9319604 (Version 1)
Quarter: 2013Q2

REPORT INFORMATION
  Report Type: Spontaneous
  Country: US (occurrence: US)
  Receive Date: 20130530
  Receipt Date: 20130530
  Transmission Date: 20140414
  Serious: Yes (Hospitalization)
  Sender: FDA-Public Use
  Company Number: US-GLAXOSMITHKLINE-A1011328A

PATIENT
  Sex: Female

DRUGS (4)
  1. FLOLAN [Suspect]
     Indication: COR PULMONALE CHRONIC
     Dosage: 21.5NGKM CONTINUOUS
     Route: 065
     Dates: start: 20090210
  2. REVATIO [Concomitant]
  3. COUMADIN [Concomitant]
  4. WARFARIN [Concomitant]

REACTIONS (3)
  - Mastitis [Unknown]
  - Weight decreased [Unknown]
  - Headache [Unknown]
